FAERS Safety Report 8760763 (Version 2)
Quarter: 2012Q4

REPORT INFORMATION
  Report Type: Report from Study
  Country: GB (occurrence: GB)
  Receive Date: 20120830
  Receipt Date: 20120830
  Transmission Date: 20130627
  Serious: Yes (Hospitalization)
  Sender: FDA-Public Use
  Company Number: GB-TEVA-252977ISR

PATIENT
  Age: 80 Year
  Sex: Male

DRUGS (13)
  1. PREDNISOLONE [Suspect]
     Indication: PROSTATE CANCER METASTATIC
     Dosage: cycles 1-6
     Route: 048
     Dates: start: 20100420
  2. ABIRATERONE ACETATE [Suspect]
     Indication: PROSTATE CANCER METASTATIC
     Dosage: Cycle 1-5
     Route: 048
     Dates: start: 20100420, end: 20100907
  3. ABIRATERONE ACETATE [Suspect]
     Dosage: Cycle 6
     Dates: start: 20100907
  4. GOSERELIN [Concomitant]
     Indication: PROSTATE CANCER
     Route: 058
     Dates: start: 200207
  5. GOSERELIN [Concomitant]
     Dates: start: 20100420
  6. ACETYLSALICYLIC ACID [Concomitant]
     Indication: CARDIAC DISORDER
     Dosage: 75 Milligram Daily;
     Route: 048
     Dates: start: 197901
  7. ATORVASTATIN [Concomitant]
     Indication: HYPERCHOLESTEROLAEMIA
     Dosage: 80 Milligram Daily;
     Route: 048
     Dates: start: 199001
  8. BENDROFLUMETHIAZIDE [Concomitant]
     Indication: HYPERTENSION
     Dosage: 2.5 Milligram Daily;
     Route: 048
     Dates: start: 199001
  9. ATENOLOL [Concomitant]
     Indication: HYPERTENSION
     Dosage: 100 Milligram Daily;
     Route: 048
     Dates: start: 20100409
  10. AMLODIPINE [Concomitant]
     Indication: HYPERTENSION
     Dosage: 5 Milligram Daily;
     Route: 048
     Dates: start: 20100427
  11. PANADEINE CO [Concomitant]
     Indication: ABDOMINAL DISCOMFORT
     Route: 048
     Dates: start: 201007
  12. PARACETAMOL [Concomitant]
     Indication: CANCER PAIN
     Dosage: 4 Gram Daily;
     Route: 048
     Dates: start: 201009
  13. CODEINE [Concomitant]
     Indication: CANCER PAIN
     Dosage: 240 Milligram Daily;
     Route: 048
     Dates: start: 201009

REACTIONS (1)
  - Renal failure [Recovered/Resolved]
